FAERS Safety Report 9780966 (Version 1)
Quarter: 2013Q4

REPORT INFORMATION
  Report Type: Spontaneous
  Country: US (occurrence: None)
  Receive Date: 20131220
  Receipt Date: 20131220
  Transmission Date: 20140711
  Serious: Yes (Hospitalization)
  Sender: FDA-Public Use
  Company Number: US-013936

PATIENT
  Age: 79 Year
  Sex: Male

DRUGS (1)
  1. FIRMAGON /01764801/ [Suspect]
     Indication: PROSTATE CANCER
     Route: 058
     Dates: start: 201311, end: 201311

REACTIONS (4)
  - Nausea [None]
  - Vomiting [None]
  - Dehydration [None]
  - Asthenia [None]
